FAERS Safety Report 9519429 (Version 1)
Quarter: 2013Q3

REPORT INFORMATION
  Report Type: Spontaneous
  Country: PE (occurrence: PE)
  Receive Date: 20130912
  Receipt Date: 20130912
  Transmission Date: 20140515
  Serious: Yes (Death)
  Sender: FDA-Public Use
  Company Number: PE-GLAXOSMITHKLINE-A1041078A

PATIENT
  Age: 94 Year
  Sex: Female

DRUGS (1)
  1. SERETIDE [Suspect]
     Indication: PULMONARY FIBROSIS
     Dosage: 6PUFF PER DAY
     Route: 055
     Dates: start: 20130128

REACTIONS (3)
  - Pulmonary fibrosis [Fatal]
  - Pneumonia [Unknown]
  - Overdose [Unknown]
